FAERS Safety Report 20836336 (Version 2)
Quarter: 2022Q2

REPORT INFORMATION
  Report Type: Report from Study
  Country: US (occurrence: US)
  Receive Date: 20220517
  Receipt Date: 20220628
  Transmission Date: 20220721
  Serious: Yes (Hospitalization, Other)
  Sender: FDA-Public Use
  Company Number: US-BRISTOL-MYERS SQUIBB COMPANY-2022-032109

PATIENT
  Age: 63 Year
  Sex: Female
  Weight: 93.4 kg

DRUGS (5)
  1. NITROFURANTOIN [Concomitant]
     Active Substance: NITROFURANTOIN
     Indication: Urinary tract infection
     Route: 048
     Dates: start: 20181016
  2. TIZANIDINE [Concomitant]
     Active Substance: TIZANIDINE
     Indication: Patellofemoral pain syndrome
     Route: 048
     Dates: start: 201911
  3. TYLENOL [Concomitant]
     Active Substance: ACETAMINOPHEN
     Indication: Headache
     Route: 048
     Dates: start: 202001
  4. ADVIL [Concomitant]
     Active Substance: IBUPROFEN
     Indication: Tendon rupture
     Route: 048
  5. CALCIUM CARBONATE\MAGNESIUM CARBONATE [Concomitant]
     Active Substance: CALCIUM CARBONATE\MAGNESIUM CARBONATE
     Dosage: AS NEEDED
     Route: 048
     Dates: start: 202108

REACTIONS (2)
  - Colitis ulcerative [Not Recovered/Not Resolved]
  - Asthma [Recovered/Resolved]

NARRATIVE: CASE EVENT DATE: 20220429
